FAERS Safety Report 23303638 (Version 1)
Quarter: 2023Q4

REPORT INFORMATION
  Report Type: Report from Study
  Country: US (occurrence: US)
  Receive Date: 20231215
  Receipt Date: 20231215
  Transmission Date: 20240110
  Serious: Yes (Hospitalization)
  Sender: FDA-Public Use
  Company Number: US-BAUSCH-BL-2023-018444

PATIENT
  Sex: Male

DRUGS (2)
  1. XIFAXAN [Suspect]
     Active Substance: RIFAXIMIN
     Indication: Hepatic encephalopathy
     Route: 048
  2. XIFAXAN [Suspect]
     Active Substance: RIFAXIMIN
     Dosage: INCREASED
     Route: 048
     Dates: start: 202312

REACTIONS (2)
  - Ammonia increased [Unknown]
  - Off label use [Unknown]

NARRATIVE: CASE EVENT DATE: 20231201
